FAERS Safety Report 5159320-8 (Version None)
Quarter: 2006Q4

REPORT INFORMATION
  Report Type: 
  Country: None (occurrence: None)
  Receive Date: 20061120
  Receipt Date: 20061107
  Transmission Date: 20070319
  Serious: Yes (Other)
  Sender: FDA-Public Use
  Company Number: CIP06002495

PATIENT
  Age: 35 Year
  Sex: Female

DRUGS (7)
  1. RISEDRONATE SODIUM [Suspect]
     Indication: OSTEOPOROSIS
     Dosage: 2.5 MG DAILY, ORAL
     Route: 048
     Dates: start: 20060920, end: 20061002
  2. BONALON (ALENDRONIC ACID) [Suspect]
     Indication: OSTEOPOROSIS
     Dates: end: 20060901
  3. FAMOTIDINE [Concomitant]
  4. PREDNISOLONE [Concomitant]
  5. SULFAMETHOXAZOLE + TRIMETHOPRIM [Concomitant]
  6. ALFAROL (ALFACALCIDOL) [Concomitant]
  7. PERSANTIN [Concomitant]

REACTIONS (13)
  - BASOPHIL COUNT DECREASED [None]
  - BLOOD ALKALINE PHOSPHATASE INCREASED [None]
  - BLOOD CREATININE DECREASED [None]
  - CONDITION AGGRAVATED [None]
  - EOSINOPHIL COUNT DECREASED [None]
  - GRANULOCYTOPENIA [None]
  - LYMPHOCYTE COUNT INCREASED [None]
  - MONOCYTE COUNT INCREASED [None]
  - NEUTROPHIL COUNT DECREASED [None]
  - RED BLOOD CELL COUNT DECREASED [None]
  - RENAL IMPAIRMENT [None]
  - WHITE BLOOD CELL COUNT DECREASED [None]
  - WHITE BLOOD CELL COUNT INCREASED [None]
